FAERS Safety Report 4548372-1 (Version None)
Quarter: 2005Q1

REPORT INFORMATION
  Report Type: 
  Country: None (occurrence: None)
  Receive Date: 20050110
  Receipt Date: 20041201
  Transmission Date: 20050727
  Serious: Yes (Hospitalization)
  Sender: FDA-Public Use
  Company Number: US-ROCHE-387966

PATIENT
  Age: 45 Year
  Sex: Male
  Weight: 120 kg

DRUGS (12)
  1. CAPECITABINE [Suspect]
     Dosage: PATIENT ENTERED INTO 622 MG/M2 TWICE DAILY ARM (-1).  DRUG TAKEN ON DAYS 1-21.  LAST DAY WHEN DRUG +
     Route: 048
     Dates: start: 20041108, end: 20041210
  2. CAPECITABINE [Suspect]
     Dosage: PATIENT ENTERED INTO 622 MG/M2 TWICE DAILY ARM (-1).  DRUG TAKEN ON DAYS 1-21.
     Route: 048
     Dates: start: 20041213
  3. GEMCITABINE [Suspect]
     Dosage: PATIENT ENTERED INTO 750 MG/M2 DAILY ARM (-1).  DRUG TAKEN ON DAYS 1, 8 AND 15.  LAST DAY WHEN DRUG+
     Route: 042
     Dates: start: 20041108
  4. TYLENOL [Concomitant]
     Dosage: PRN (OCCASIONAL)
  5. VITAMIN B6 [Concomitant]
  6. KEPPRA [Concomitant]
     Dates: start: 20041213
  7. COUMADIN [Concomitant]
  8. VICODIN [Concomitant]
     Dosage: PRN (OCCASIONAL)
  9. METOCLOPRAMIDE [Concomitant]
  10. AMBIEN [Concomitant]
  11. IMODIUM [Concomitant]
  12. DARVON [Concomitant]

REACTIONS (13)
  - CEREBRAL INFARCTION [None]
  - CEREBRAL ISCHAEMIA [None]
  - CONVULSION [None]
  - DILATATION ATRIAL [None]
  - DYSKINESIA [None]
  - EMBOLISM [None]
  - MASS [None]
  - MITRAL VALVE INCOMPETENCE [None]
  - RASH [None]
  - THROMBOCYTOPENIA [None]
  - TRICUSPID VALVE INCOMPETENCE [None]
  - VENTRICULAR DYSFUNCTION [None]
  - VENTRICULAR HYPERTROPHY [None]
